FAERS Safety Report 24529293 (Version 2)
Quarter: 2024Q4

REPORT INFORMATION
  Report Type: Spontaneous
  Country: KR (occurrence: KR)
  Receive Date: 20241021
  Receipt Date: 20241031
  Transmission Date: 20250115
  Serious: Yes (Hospitalization)
  Sender: SAMSUNG BIOEPIS
  Company Number: KR-SAMSUNG BIOEPIS-SB-2024-31054

PATIENT
  Age: 56 Year
  Sex: Male
  Weight: 46 kg

DRUGS (12)
  1. TRASTUZUMAB [Suspect]
     Active Substance: TRASTUZUMAB
     Indication: Bile duct cancer
     Route: 042
     Dates: start: 20240920, end: 20241005
  2. TRASTUZUMAB [Suspect]
     Active Substance: TRASTUZUMAB
     Route: 042
     Dates: start: 20241018
  3. NIVOLUMAB [Suspect]
     Active Substance: NIVOLUMAB
     Indication: Bile duct cancer
     Route: 042
     Dates: start: 20240920, end: 20241005
  4. NIVOLUMAB [Suspect]
     Active Substance: NIVOLUMAB
     Route: 042
     Dates: start: 20241018
  5. GEMCITABINE [Suspect]
     Active Substance: GEMCITABINE
     Indication: Bile duct cancer
     Route: 042
     Dates: start: 20240920, end: 20241005
  6. GEMCITABINE [Suspect]
     Active Substance: GEMCITABINE
     Route: 042
     Dates: start: 20241018
  7. CISPLATIN [Suspect]
     Active Substance: CISPLATIN
     Indication: Bile duct cancer
     Route: 042
     Dates: start: 20240920, end: 20241005
  8. CISPLATIN [Suspect]
     Active Substance: CISPLATIN
     Route: 042
     Dates: start: 20241018
  9. Atrovent Inhalation Solution UDV [Concomitant]
     Indication: Product used for unknown indication
     Dosage: 500 MCG/2ML;
     Dates: start: 20240927, end: 20240929
  10. VENTOLIN [Concomitant]
     Active Substance: ALBUTEROL SULFATE
     Indication: Product used for unknown indication
     Dates: start: 20240927, end: 20240928
  11. ACETYLCYSTEINE [Concomitant]
     Active Substance: ACETYLCYSTEINE
     Indication: Product used for unknown indication
     Dates: start: 20240927, end: 20240928
  12. OXYGEN [Concomitant]
     Active Substance: OXYGEN
     Dates: start: 20240927, end: 20240929

REACTIONS (2)
  - Cholecystitis acute [Recovered/Resolved with Sequelae]
  - Off label use [Unknown]

NARRATIVE: CASE EVENT DATE: 20241005
